FAERS Safety Report 8152111-5 (Version None)
Quarter: 2012Q1

REPORT INFORMATION
  Report Type: 
  Country: None (occurrence: None)
  Receive Date: 20120221
  Receipt Date: 20120214
  Transmission Date: 20120608
  Serious: Yes (Hospitalization, Other)
  Sender: FDA-Public Use
  Company Number: JP-PFIZER INC-2012023818

PATIENT
  Age: 39 Year
  Sex: Male
  Weight: 53.9 kg

DRUGS (18)
  1. URSO 250 [Concomitant]
     Indication: HEPATITIS
     Dosage: 100 MG, 3X/DAY
     Route: 048
  2. LENDORMIN [Concomitant]
     Indication: INSOMNIA
     Dosage: 0.25 MG, 1X/DAY
     Route: 048
  3. SITAGLIPTIN PHOSPHATE [Suspect]
     Indication: TYPE 2 DIABETES MELLITUS
     Dosage: 50 MG, 1X/DAY
     Route: 048
     Dates: start: 20110916, end: 20111224
  4. BASEN [Concomitant]
     Indication: TYPE 2 DIABETES MELLITUS
     Dosage: 0.2 MG, 3X/DAY
     Route: 048
  5. GASMOTIN [Concomitant]
     Indication: GASTRITIS
     Dosage: 5 MG, 3X/DAY
     Route: 048
     Dates: start: 20110720
  6. VOLTAREN [Concomitant]
     Indication: DIABETIC NEUROPATHY
     Dosage: 50 MG, AS NEEDED
  7. AMARYL [Concomitant]
     Indication: TYPE 2 DIABETES MELLITUS
     Dosage: 1 MG, 1X/DAY
     Route: 048
     Dates: start: 20110720, end: 20110916
  8. AMARYL [Concomitant]
     Dosage: 0.5 MG, 1X/DAY
     Route: 048
     Dates: start: 20111125
  9. LAC B [Concomitant]
     Indication: DIARRHOEA
     Dosage: 1 G, 3X/DAY
     Route: 048
     Dates: start: 20110805
  10. FERROUS FUMARATE [Suspect]
     Indication: ANAEMIA
     Dosage: 100 MG, 1X/DAY
     Route: 048
     Dates: start: 20110916, end: 20110924
  11. LOPERAMIDE HCL [Concomitant]
     Indication: DIARRHOEA
     Dosage: 1 MG, 1X/DAY
     Route: 048
     Dates: start: 20111125
  12. MEXITIL [Concomitant]
     Indication: DIABETIC NEUROPATHY
     Dosage: 50 MG, 3X/DAY
     Route: 048
     Dates: start: 20110720
  13. ZOLPIDEM [Concomitant]
     Indication: INSOMNIA
     Dosage: 10 MG, 1X/DAY
     Route: 048
  14. LYRICA [Suspect]
     Indication: DIABETIC NEUROPATHY
     Dosage: 75 MG, 2X/DAY
     Route: 048
     Dates: start: 20110916, end: 20111013
  15. LYRICA [Suspect]
     Indication: HYPOAESTHESIA
     Dosage: 150 MG, 2X/DAY
     Route: 048
     Dates: start: 20111014, end: 20111224
  16. METHYCOBAL [Concomitant]
     Indication: DIABETIC NEUROPATHY
     Dosage: 500 UG, 3X/DAY
     Route: 048
  17. KINEDAK [Concomitant]
     Indication: DIABETIC NEUROPATHY
     Dosage: 50 MG, 3X/DAY
     Route: 048
     Dates: start: 20110720
  18. FAMOTIDINE [Concomitant]
     Indication: GASTRITIS
     Dosage: 20 MG, 2X/DAY
     Route: 048

REACTIONS (5)
  - BLOOD CREATINE PHOSPHOKINASE INCREASED [None]
  - MUSCULAR WEAKNESS [None]
  - MYALGIA [None]
  - HYPOKALAEMIA [None]
  - DEHYDRATION [None]
